FAERS Safety Report 19157135 (Version 1)
Quarter: 2021Q2

REPORT INFORMATION
  Report Type: Spontaneous
  Country: DE (occurrence: DE)
  Receive Date: 20210420
  Receipt Date: 20210420
  Transmission Date: 20210717
  Serious: Yes (Hospitalization, Other)
  Sender: FDA-Public Use
  Company Number: DE-ROCHE-2807956

PATIENT
  Age: 57 Year
  Sex: Male
  Weight: 63 kg

DRUGS (8)
  1. EPCLUSA [Suspect]
     Active Substance: SOFOSBUVIR\VELPATASVIR
     Indication: CHRONIC HEPATITIS C
  2. TORASEMIDE [Concomitant]
     Active Substance: TORSEMIDE
  3. NOVORAPID [Concomitant]
     Active Substance: INSULIN ASPART
  4. RIBAVIRIN. [Suspect]
     Active Substance: RIBAVIRIN
     Indication: HEPATIC CIRRHOSIS
     Dosage: UNK
     Route: 065
     Dates: start: 20201210, end: 20210101
  5. SPIRONOLACTONE. [Concomitant]
     Active Substance: SPIRONOLACTONE
  6. RIBAVIRIN. [Suspect]
     Active Substance: RIBAVIRIN
     Indication: CHRONIC HEPATITIS C
  7. EPCLUSA [Suspect]
     Active Substance: SOFOSBUVIR\VELPATASVIR
     Indication: HEPATIC CIRRHOSIS
     Dosage: UNK
     Route: 065
     Dates: start: 20201210
  8. LANTUS [Concomitant]
     Active Substance: INSULIN GLARGINE

REACTIONS (6)
  - Prerenal failure [Unknown]
  - Glomerular filtration rate abnormal [Unknown]
  - Anaemia [Recovered/Resolved]
  - Ascites [Unknown]
  - Hepatic cirrhosis [Not Recovered/Not Resolved]
  - Hepatorenal syndrome [Unknown]

NARRATIVE: CASE EVENT DATE: 20210226
